FAERS Safety Report 9766483 (Version 2)
Quarter: 2013Q4

REPORT INFORMATION
  Report Type: Spontaneous
  Country: US (occurrence: US)
  Receive Date: 20131217
  Receipt Date: 20131230
  Transmission Date: 20140711
  Serious: No
  Sender: FDA-Public Use
  Company Number: US-009507513-1312USA003921

PATIENT
  Age: 20 Year
  Sex: Female
  Weight: 49.89 kg

DRUGS (1)
  1. IMPLANON [Suspect]
     Indication: CONTRACEPTION
     Dosage: UNK
     Route: 059
     Dates: start: 201008

REACTIONS (5)
  - Cold sweat [Not Recovered/Not Resolved]
  - Adverse event [Not Recovered/Not Resolved]
  - Metrorrhagia [Unknown]
  - Medical device complication [Not Recovered/Not Resolved]
  - Incorrect drug administration duration [Unknown]
